FAERS Safety Report 5065393-3 (Version None)
Quarter: 2006Q3

REPORT INFORMATION
  Report Type: 
  Country: None (occurrence: None)
  Receive Date: 20060725
  Receipt Date: 20060712
  Transmission Date: 20061208
  Serious: Yes (Hospitalization)
  Sender: FDA-Public Use
  Company Number: 2006087527

PATIENT
  Age: 51 Year
  Sex: Female

DRUGS (11)
  1. SILDENAFIL CITRATE [Suspect]
     Indication: PULMONARY HYPERTENSION
     Dosage: 37.5 MG (12.5 MG, FREQUENCY: TID) ORAL
     Route: 048
     Dates: start: 20040814
  2. WARFARIN SODIUM [Concomitant]
  3. BERAPROST [Concomitant]
  4. CLENBUTEROL  HYDROCHLORIDE [Concomitant]
  5. MUCOSOLVAN (AMBROXOL HYDROCHLORIDE) [Concomitant]
  6. ANPLAG (SARPOGRELATE HYDROCHLORIDE) [Concomitant]
  7. LASIX [Concomitant]
  8. ALLOPURINOL [Concomitant]
  9. ALDACTONE [Concomitant]
  10. BUFFERIN [Concomitant]
  11. OPALMON (LIMAPROST) [Concomitant]

REACTIONS (4)
  - BLOOD PRESSURE DECREASED [None]
  - CARDIAC FAILURE [None]
  - CONDITION AGGRAVATED [None]
  - DIARRHOEA [None]
